FAERS Safety Report 18737356 (Version 4)
Quarter: 2021Q3

REPORT INFORMATION
  Report Type: Report from Study
  Country: US (occurrence: US)
  Receive Date: 20210113
  Receipt Date: 20210816
  Transmission Date: 20211014
  Serious: No
  Sender: FDA-Public Use
  Company Number: NVSC2021US006782

PATIENT
  Sex: Female

DRUGS (2)
  1. COSENTYX [Suspect]
     Active Substance: SECUKINUMAB
     Indication: PSORIASIS
     Dosage: UNK, QW
     Route: 058
  2. COSENTYX [Suspect]
     Active Substance: SECUKINUMAB
     Dosage: UNK, QMO
     Route: 058

REACTIONS (5)
  - Therapeutic product effect incomplete [Recovering/Resolving]
  - Psoriasis [Unknown]
  - Stress [Unknown]
  - Fatigue [Recovering/Resolving]
  - Pain in extremity [Recovering/Resolving]
